FAERS Safety Report 14746435 (Version 1)
Quarter: 2018Q2

REPORT INFORMATION
  Report Type: Spontaneous
  Country: US (occurrence: US)
  Receive Date: 20180411
  Receipt Date: 20180411
  Transmission Date: 20180711
  Serious: Yes (Hospitalization)
  Sender: FDA-Public Use
  Company Number: US-ENDO PHARMACEUTICALS INC-2017-009174

PATIENT
  Age: 60 Year
  Sex: Male
  Weight: 95.24 kg

DRUGS (7)
  1. AVEED [Suspect]
     Active Substance: TESTOSTERONE UNDECANOATE
     Dosage: ONE INJECTION, UNKNOWN
     Route: 065
     Dates: start: 20170208
  2. AVEED [Suspect]
     Active Substance: TESTOSTERONE UNDECANOATE
     Dosage: ONE INJECTION, UNKNOWN
     Route: 065
     Dates: start: 20160829
  3. AVEED [Suspect]
     Active Substance: TESTOSTERONE UNDECANOATE
     Dosage: ONE INJECTION, UNKNOWN
     Route: 065
     Dates: start: 20170822
  4. AVEED [Suspect]
     Active Substance: TESTOSTERONE UNDECANOATE
     Dosage: ONE INJECTION, UNKNOWN
     Route: 065
     Dates: start: 20160622
  5. AVEED [Suspect]
     Active Substance: TESTOSTERONE UNDECANOATE
     Indication: PRODUCT USED FOR UNKNOWN INDICATION
     Dosage: ONE INJECTION, UNKNOWN
     Route: 065
     Dates: start: 20171013, end: 20171013
  6. AVEED [Suspect]
     Active Substance: TESTOSTERONE UNDECANOATE
     Dosage: ONE INJECTION, UNKNOWN
     Route: 065
     Dates: start: 20160523
  7. AVEED [Suspect]
     Active Substance: TESTOSTERONE UNDECANOATE
     Dosage: ONE INJECTION, UNKNOWN
     Route: 065
     Dates: start: 20161104

REACTIONS (2)
  - Inappropriate schedule of drug administration [Recovered/Resolved]
  - Pulmonary embolism [Recovering/Resolving]

NARRATIVE: CASE EVENT DATE: 20170822
